FAERS Safety Report 6796226-2 (Version None)
Quarter: 2010Q2

REPORT INFORMATION
  Report Type: 
  Country: None (occurrence: None)
  Receive Date: 20100624
  Receipt Date: 20100624
  Transmission Date: 20101027
  Serious: No
  Sender: FDA-Public Use
  Company Number: None

PATIENT
  Sex: Male
  Weight: 104.3273 kg

DRUGS (2)
  1. CIALIS [Suspect]
     Indication: ERECTILE DYSFUNCTION
     Dosage: 1 PILL AT TIME OF INTERCO PO
     Route: 048
     Dates: start: 20050415, end: 20050415
  2. VIAGRA [Suspect]
     Indication: ERECTILE DYSFUNCTION
     Dosage: 1 PILL TIME OF INTERCOURSE PO
     Route: 048
     Dates: start: 20050515, end: 20050515

REACTIONS (4)
  - AGEUSIA [None]
  - ANOSMIA [None]
  - NASAL CONGESTION [None]
  - UNEVALUABLE EVENT [None]
